FAERS Safety Report 4579358-9 (Version None)
Quarter: 2005Q1

REPORT INFORMATION
  Report Type: 
  Country: None (occurrence: None)
  Receive Date: 20050209
  Receipt Date: 20050125
  Transmission Date: 20050727
  Serious: Yes (Death, Hospitalization, Other)
  Sender: FDA-Public Use
  Company Number: 9833

PATIENT
  Age: 72 Year
  Sex: Male

DRUGS (5)
  1. FLUOROURACIL [Suspect]
     Indication: COLORECTAL CANCER
     Dosage: 4347 MG  IV
     Route: 042
     Dates: start: 20041221, end: 20041221
  2. IRINOTECAN HCL [Suspect]
     Indication: COLORECTAL CANCER
     Dosage: 340 MG  IV
     Route: 042
     Dates: start: 20041221, end: 20041221
  3. LEUCOVORIN [Suspect]
     Indication: COLORECTAL CANCER
     Dosage: 754 MG  IV
     Route: 042
     Dates: start: 20041221, end: 20041221
  4. OXALIPLATIN [Suspect]
     Indication: COLORECTAL CANCER
     Dates: start: 20041109
  5. ATROPINE SULFATE [Concomitant]

REACTIONS (24)
  - ASTHENIA [None]
  - ATRIAL FIBRILLATION [None]
  - BLOOD ALKALINE PHOSPHATASE INCREASED [None]
  - BLOOD CALCIUM DECREASED [None]
  - BLOOD CHLORIDE INCREASED [None]
  - BLOOD POTASSIUM DECREASED [None]
  - BLOOD UREA INCREASED [None]
  - CLOSTRIDIAL INFECTION [None]
  - DEHYDRATION [None]
  - DIARRHOEA [None]
  - DRUG INEFFECTIVE [None]
  - ELECTROLYTE IMBALANCE [None]
  - FEBRILE NEUTROPENIA [None]
  - HAEMATOCRIT DECREASED [None]
  - HAEMOGLOBIN DECREASED [None]
  - LYMPHOCYTE COUNT DECREASED [None]
  - NEUTROPHIL COUNT DECREASED [None]
  - ORAL INTAKE REDUCED [None]
  - PCO2 DECREASED [None]
  - PLATELET COUNT ABNORMAL [None]
  - RED BLOOD CELL COUNT DECREASED [None]
  - REFUSAL OF TREATMENT BY PATIENT [None]
  - SUDDEN DEATH [None]
  - VENTRICULAR TACHYCARDIA [None]
